FAERS Safety Report 5061931-5 (Version None)
Quarter: 2006Q3

REPORT INFORMATION
  Report Type: 
  Country: None (occurrence: None)
  Receive Date: 20060726
  Receipt Date: 20060718
  Transmission Date: 20061208
  Serious: Yes (Hospitalization)
  Sender: FDA-Public Use
  Company Number: PHBS2006RU10843

PATIENT
  Age: 54 Year
  Sex: Female

DRUGS (3)
  1. METYPRED [Concomitant]
  2. METHOTREXATE [Concomitant]
  3. MIACALCIN [Suspect]
     Indication: OSTEOPOROSIS
     Dosage: 100 IU, ONCE/SINGLE

REACTIONS (6)
  - ABDOMINAL PAIN [None]
  - ALANINE AMINOTRANSFERASE INCREASED [None]
  - ASPARTATE AMINOTRANSFERASE INCREASED [None]
  - BLOOD AMYLASE INCREASED [None]
  - PANCREATITIS [None]
  - VOMITING [None]
